FAERS Safety Report 8984923 (Version 1)
Quarter: 2012Q4

REPORT INFORMATION
  Report Type: 
  Country: US (occurrence: US)
  Receive Date: 20121225
  Receipt Date: 20121225
  Transmission Date: 20130627
  Serious: No
  Sender: FDA-Public Use
  Company Number: US-009507513-1212USA006543

PATIENT
  Age: 55 Year
  Sex: Male

DRUGS (1)
  1. BCG LIVE [Suspect]
     Indication: BLADDER CANCER
     Dosage: UNK
     Route: 043

REACTIONS (3)
  - Neuropathy peripheral [Unknown]
  - Vasculitis [Unknown]
  - Arthritis [Unknown]
